FAERS Safety Report 6186161-5 (Version None)
Quarter: 2009Q2

REPORT INFORMATION
  Report Type: 
  Country: None (occurrence: None)
  Receive Date: 20090511
  Receipt Date: 20090507
  Transmission Date: 20091009
  Serious: Yes (Other)
  Sender: FDA-Public Use
  Company Number: AU-ROXANE LABORATORIES, INC.-2009-RO-00467RO

PATIENT
  Age: 58 Year
  Sex: Female

DRUGS (5)
  1. ROPINIROLE [Suspect]
     Indication: RESTLESS LEGS SYNDROME
  2. ROPINIROLE [Suspect]
     Dosage: 2MG
     Dates: start: 20070901
  3. CABERGOLINE [Suspect]
     Indication: RESTLESS LEGS SYNDROME
  4. GABAPENTIN [Suspect]
     Indication: RESTLESS LEGS SYNDROME
  5. MADOPAR [Concomitant]
     Indication: RESTLESS LEGS SYNDROME

REACTIONS (5)
  - DERMATILLOMANIA [None]
  - DRUG INEFFECTIVE [None]
  - MOVEMENT DISORDER [None]
  - STEREOTYPY [None]
  - TRICHOTILLOMANIA [None]
